FAERS Safety Report 11964989 (Version 1)
Quarter: 2016Q1

REPORT INFORMATION
  Report Type: Spontaneous
  Country: US (occurrence: None)
  Receive Date: 20160122
  Receipt Date: 20160122
  Transmission Date: 20160526
  Serious: No
  Sender: FDA-Public Use
  Company Number: None

PATIENT
  Age: 68 Year
  Sex: Female
  Weight: 67.59 kg

DRUGS (9)
  1. LISINOPRIL. [Concomitant]
     Active Substance: LISINOPRIL
  2. ALPRAZOLAM. [Concomitant]
     Active Substance: ALPRAZOLAM
  3. HYDROCHLOROTHIAZIDE. [Concomitant]
     Active Substance: HYDROCHLOROTHIAZIDE
  4. MAGNESIUM [Concomitant]
     Active Substance: MAGNESIUM
  5. IBANDRONATE 150 MG GENERIC FOR BONIVA 150MG TAB ARROW PHARM MALTA LIMITED [Suspect]
     Active Substance: IBANDRONATE SODIUM
     Indication: OSTEOPOROSIS
     Dosage: 1 PILL IN MORNING, MONTHLY, FULL GLASS OF WATER
     Dates: start: 20151120, end: 20151120
  6. CALCIUM [Concomitant]
     Active Substance: CALCIUM
  7. ZINC [Concomitant]
     Active Substance: ZINC\ZINC CHLORIDE
  8. VITAMIN D3 [Concomitant]
     Active Substance: CHOLECALCIFEROL
  9. HYDROCODONE-ACETAMINOPEHN [Concomitant]

REACTIONS (17)
  - Dyspepsia [None]
  - Headache [None]
  - Paraesthesia [None]
  - Abdominal pain upper [None]
  - Tremor [None]
  - Hypoaesthesia [None]
  - Eye pain [None]
  - Pain in extremity [None]
  - Asthenia [None]
  - Oral pain [None]
  - Ageusia [None]
  - Malaise [None]
  - Feeding disorder [None]
  - Myalgia [None]
  - Influenza like illness [None]
  - Joint crepitation [None]
  - Pain [None]

NARRATIVE: CASE EVENT DATE: 20151126
